FAERS Safety Report 7263363-8 (Version None)
Quarter: 2011Q1

REPORT INFORMATION
  Report Type: 
  Country: None (occurrence: None)
  Receive Date: 20110130
  Receipt Date: 20100921
  Transmission Date: 20110831
  Serious: No
  Sender: FDA-Public Use
  Company Number: US-ABBOTT-10P-163-0673452-00

PATIENT
  Sex: Female
  Weight: 70.37 kg

DRUGS (11)
  1. PRAVASTATIN [Concomitant]
     Indication: PRODUCT USED FOR UNKNOWN INDICATION
  2. HUMIRA [Suspect]
     Indication: RHEUMATOID ARTHRITIS
     Dosage: ON AND OFF FOR ONE YEAR  LAST TIME ON FOR 2 MONTHS
     Dates: start: 20090901, end: 20100401
  3. MULTI-VITAMIN [Concomitant]
     Indication: VITAMIN SUPPLEMENTATION
  4. METOPROLOL [Concomitant]
     Indication: HYPERTENSION
  5. CALCIUM WITH D [Concomitant]
     Indication: PRODUCT USED FOR UNKNOWN INDICATION
  6. HUMIRA [Suspect]
     Dates: start: 20100501
  7. ACIPHEX [Concomitant]
     Indication: PRODUCT USED FOR UNKNOWN INDICATION
  8. LISINOPRIL [Concomitant]
     Indication: HYPERTENSION
  9. ULORIC [Concomitant]
     Indication: PRODUCT USED FOR UNKNOWN INDICATION
  10. EYE-CAP [Concomitant]
     Indication: DRY EYE
  11. CRESTOR [Concomitant]
     Indication: BLOOD CHOLESTEROL INCREASED

REACTIONS (5)
  - TOOTHACHE [None]
  - TOOTH DISORDER [None]
  - OEDEMA MOUTH [None]
  - TOOTH INFECTION [None]
  - HERPES ZOSTER [None]
